FAERS Safety Report 4730071-4 (Version None)
Quarter: 2005Q3

REPORT INFORMATION
  Report Type: 
  Country: None (occurrence: None)
  Receive Date: 20050728
  Receipt Date: 20050718
  Transmission Date: 20060218
  Serious: Yes (Other)
  Sender: FDA-Public Use
  Company Number: HQWYE277119JUL05

PATIENT
  Age: 54 Year
  Sex: Female
  Weight: 50.85 kg

DRUGS (1)
  1. EFFEXOR XR [Suspect]
     Indication: DEPRESSION
     Dosage: 75 MG 1X PER 1 DAY, ORAL
     Route: 048
     Dates: start: 20030101, end: 20050601

REACTIONS (6)
  - ANHEDONIA [None]
  - DRUG WITHDRAWAL SYNDROME [None]
  - INFLUENZA [None]
  - MANIA [None]
  - SUICIDAL IDEATION [None]
  - THINKING ABNORMAL [None]
